FAERS Safety Report 9970123 (Version 1)
Quarter: 2014Q1

REPORT INFORMATION
  Report Type: Spontaneous
  Country: DE (occurrence: DE)
  Receive Date: 20140306
  Receipt Date: 20140306
  Transmission Date: 20141002
  Serious: Yes (Hospitalization)
  Sender: FDA-Public Use
  Company Number: DE-TEVA-464122GER

PATIENT
  Age: 90 Year
  Sex: Female

DRUGS (6)
  1. DIAZEPAM [Suspect]
     Dosage: 45 GTT DAILY;
  2. PRAMIPEXOLE [Suspect]
  3. RISPERDAL [Suspect]
     Dosage: 3 MILLIGRAM DAILY;
  4. ZYPREXA [Suspect]
     Dosage: 5 MILLIGRAM DAILY;
  5. VALDOXAN [Suspect]
     Dosage: 25 MILLIGRAM DAILY;
  6. LEVODOPA [Suspect]

REACTIONS (6)
  - Movement disorder [Unknown]
  - Speech disorder [Unknown]
  - Eating disorder [Unknown]
  - Salivary hypersecretion [Unknown]
  - Sedation [Unknown]
  - Fall [Unknown]
